FAERS Safety Report 10643213 (Version 1)
Quarter: 2014Q4

REPORT INFORMATION
  Report Type: Spontaneous
  Country: US (occurrence: None)
  Receive Date: 20141209
  Receipt Date: 20141209
  Transmission Date: 20150529
  Serious: Yes (Hospitalization)
  Sender: FDA-Public Use
  Company Number: None

PATIENT
  Age: 78 Year
  Sex: Female

DRUGS (1)
  1. CAPECITABINE. [Suspect]
     Active Substance: CAPECITABINE
     Indication: PANCREATIC CARCINOMA
     Dosage: 14 DAYS ON, 7 OFF
     Route: 048
     Dates: start: 20141126, end: 20141130

REACTIONS (2)
  - Cardiac disorder [None]
  - Malaise [None]

NARRATIVE: CASE EVENT DATE: 20141130
